FAERS Safety Report 8771060 (Version 8)
Quarter: 2013Q2

REPORT INFORMATION
  Report Type: Report from Study
  Country: JP (occurrence: JP)
  Receive Date: 20120906
  Receipt Date: 20130604
  Transmission Date: 20140414
  Serious: Yes (Other)
  Sender: FDA-Public Use
  Company Number: JP-VERTEX PHARMACEUTICAL INC.-2012-020660

PATIENT
  Age: 61 Year
  Sex: Female

DRUGS (11)
  1. VX-950 (TELAPREVIR) [Suspect]
     Indication: CHRONIC HEPATITIS C
     Dosage: 1500 MG, QD
     Route: 048
     Dates: start: 20120514, end: 20120603
  2. VX-950 (TELAPREVIR) [Suspect]
     Dosage: 1000 MG, QD
     Route: 048
     Dates: start: 20120604, end: 20120709
  3. PEGINTERFERON ALFA-2B [Suspect]
     Indication: CHRONIC HEPATITIS C
     Dosage: 60 ?G, QW
     Route: 058
     Dates: start: 20120514, end: 20120617
  4. PEGINTERFERON ALFA-2B [Suspect]
     Dosage: 50 ?G, QW
     Route: 058
     Dates: start: 20120618, end: 20120709
  5. PEGINTERFERON ALFA-2B [Suspect]
     Dosage: 50 ?G, QW
     Route: 058
     Dates: start: 20120718, end: 20120725
  6. PEGINTERFERON ALFA-2B [Suspect]
     Dosage: 25 ?G, QW
     Route: 058
     Dates: start: 20120801
  7. REBETOL [Concomitant]
     Dosage: 600 MG, QD
     Route: 048
     Dates: start: 20120514, end: 20120610
  8. REBETOL [Concomitant]
     Dosage: 400 MG, QD
     Route: 048
     Dates: start: 20120611, end: 20120709
  9. REBETOL [Concomitant]
     Dosage: 400 MG, QD
     Route: 048
     Dates: start: 20120718
  10. MUCOSTA [Concomitant]
     Dosage: 3 DF, QD
     Route: 048
     Dates: start: 20120603, end: 20120702
  11. LORFENAMIN [Concomitant]
     Dosage: UNK, PRN
     Route: 048
     Dates: start: 20120603

REACTIONS (3)
  - White blood cell count decreased [Recovered/Resolved]
  - Neutrophil count decreased [Recovered/Resolved]
  - Erythema multiforme [Recovered/Resolved]
